FAERS Safety Report 10368795 (Version 1)
Quarter: 2014Q3

REPORT INFORMATION
  Report Type: Spontaneous
  Country: IT (occurrence: IT)
  Receive Date: 20140807
  Receipt Date: 20140807
  Transmission Date: 20150326
  Serious: No
  Sender: FDA-Public Use
  Company Number: IT-MYLANLABS-2014M1000465

PATIENT

DRUGS (4)
  1. PHENOBARBITAL. [Suspect]
     Active Substance: PHENOBARBITAL
     Indication: EPILEPSY
     Route: 065
  2. TOPIRAMATE. [Suspect]
     Active Substance: TOPIRAMATE
     Indication: EPILEPSY
     Dosage: 200 MG/DAY
     Route: 065
  3. SULTIAME [Suspect]
     Active Substance: SULTHIAME
     Indication: EPILEPSY
     Route: 065
  4. PHENYTOIN. [Suspect]
     Active Substance: PHENYTOIN
     Indication: EPILEPSY
     Route: 065

REACTIONS (4)
  - Restless legs syndrome [Unknown]
  - Condition aggravated [Recovered/Resolved]
  - Hiccups [Recovered/Resolved]
  - Cough [Unknown]
